FAERS Safety Report 5332055-4 (Version None)
Quarter: 2007Q2

REPORT INFORMATION
  Report Type: 
  Country: None (occurrence: None)
  Receive Date: 20070306
  Receipt Date: 20051228
  Transmission Date: 20071010
  Serious: Yes (Hospitalization)
  Sender: FDA-Public Use
  Company Number: A03200504455

PATIENT
  Age: 86 Year
  Sex: Male
  Weight: 72.56 kg

DRUGS (8)
  1. PLAVIX [Suspect]
     Indication: VASCULAR BYPASS GRAFT
     Dosage: 75 MG QD - ORAL
     Route: 048
     Dates: start: 20050601
  2. METOPROLOL TARTRATE [Concomitant]
  3. DIGOXIN [Concomitant]
  4. DOXAZOSIN MESYLATE [Concomitant]
  5. SIMVASTATIN [Concomitant]
  6. ACETYLSALICYLIC ACID SRT [Concomitant]
  7. ENALAPRIL MALEATE [Concomitant]
  8. ISOSORBIDE DINITRATE [Concomitant]

REACTIONS (3)
  - RASH MACULAR [None]
  - SKIN DISCOLOURATION [None]
  - SYNCOPE [None]
